FAERS Safety Report 18361557 (Version 1)
Quarter: 2020Q4

REPORT INFORMATION
  Report Type: Spontaneous
  Country: US (occurrence: US)
  Receive Date: 20201008
  Receipt Date: 20201008
  Transmission Date: 20210114
  Serious: No
  Sender: FDA-Public Use
  Company Number: US-LEXICON PHARMACEUTICALS, INC-20-1606-00766

PATIENT
  Age: 56 Year
  Sex: Female

DRUGS (3)
  1. VITAMIN B12 [Suspect]
     Active Substance: CYANOCOBALAMIN
  2. LANREOTIDE [Concomitant]
     Active Substance: LANREOTIDE
  3. XERMELO [Suspect]
     Active Substance: TELOTRISTAT ETHYL
     Indication: CARCINOID SYNDROME
     Dates: start: 20190608

REACTIONS (3)
  - Therapeutic response unexpected [Unknown]
  - Flushing [Unknown]
  - Dyspepsia [Recovering/Resolving]
